FAERS Safety Report 6879715-1 (Version None)
Quarter: 2010Q3

REPORT INFORMATION
  Report Type: 
  Country: None (occurrence: None)
  Receive Date: 20100728
  Receipt Date: 20100716
  Transmission Date: 20110219
  Serious: Yes (Hospitalization)
  Sender: FDA-Public Use
  Company Number: US-ELI_LILLY_AND_COMPANY-US201006001381

PATIENT
  Sex: Female

DRUGS (11)
  1. FORTEO [Suspect]
     Indication: OSTEOPOROSIS
     Dosage: 20 UG, DAILY (1/D)
     Dates: start: 20100505, end: 20100519
  2. BENICAR [Concomitant]
     Dosage: 40 MG, DAILY (1/D)
  3. ISOSORBIDE MONONITRATE [Concomitant]
     Dosage: 30 MG, DAILY (1/D)
  4. AMLODIPINE [Concomitant]
     Dosage: 5 MG, 2/D
  5. ASPIRIN [Concomitant]
  6. VITAMIN D [Concomitant]
     Dosage: 2000 IU, DAILY (1/D)
  7. RISEDRONATE SODIUM [Concomitant]
     Dosage: 35 MG, WEEKLY (1/W)
  8. TYLENOL                                 /SCH/ [Concomitant]
     Indication: PAIN
     Dosage: 650 MG, AS NEEDED
  9. MYLANTA [Concomitant]
     Indication: ABDOMINAL DISCOMFORT
     Dosage: 30 ML, AS NEEDED
  10. MILK OF MAGNESIA TAB [Concomitant]
     Indication: CONSTIPATION
     Dosage: 30 ML, AS NEEDED
  11. BISACODYL [Concomitant]
     Dosage: 10 MG, EACH EVENING

REACTIONS (6)
  - BLOOD PRESSURE INCREASED [None]
  - CARDIAC FAILURE CONGESTIVE [None]
  - DEPRESSED MOOD [None]
  - LOOSE TOOTH [None]
  - TOOTHACHE [None]
  - VISUAL IMPAIRMENT [None]
